FAERS Safety Report 9210832 (Version 1)
Quarter: 2013Q2

REPORT INFORMATION
  Report Type: Spontaneous
  Country: CA (occurrence: CA)
  Receive Date: 20130404
  Receipt Date: 20130404
  Transmission Date: 20140414
  Serious: Yes (Hospitalization)
  Sender: FDA-Public Use
  Company Number: CA-ELI_LILLY_AND_COMPANY-CA201303009771

PATIENT
  Age: 74 Year
  Sex: Female

DRUGS (21)
  1. ADCIRCA [Suspect]
  2. VOLIBRIS [Concomitant]
     Dosage: 10 MG, UNKNOWN
     Route: 048
     Dates: start: 20110309
  3. NORVASC [Concomitant]
  4. PRO-AAS [Concomitant]
  5. SYNTHROID [Concomitant]
  6. APO-CALCITONIN [Concomitant]
  7. ACETAZOLAMIDE [Concomitant]
  8. ARANESP [Concomitant]
  9. ATORVASTATIN [Concomitant]
  10. CARBOCAL D [Concomitant]
  11. CLONIDINE [Concomitant]
  12. DEXALIN [Concomitant]
  13. DOCUSATE SODIUM [Concomitant]
  14. FOSRENOL [Concomitant]
  15. FUROSEMIDE [Concomitant]
  16. METOPROLOL [Concomitant]
  17. VALSARTAN [Concomitant]
  18. APO-BISACODYL [Concomitant]
  19. PLAVIX [Concomitant]
  20. GRAVOL [Concomitant]
  21. IMODIUM [Concomitant]

REACTIONS (1)
  - Dyspnoea [Not Recovered/Not Resolved]
